FAERS Safety Report 9004698 (Version 1)
Quarter: 2013Q1

REPORT INFORMATION
  Report Type: Spontaneous
  Country: US (occurrence: US)
  Receive Date: 20130109
  Receipt Date: 20130109
  Transmission Date: 20140127
  Serious: No
  Sender: FDA-Public Use
  Company Number: US-PFIZER INC-2013009326

PATIENT
  Age: 44 Year
  Sex: Male
  Weight: 75.74 kg

DRUGS (2)
  1. ATORVASTATIN CALCIUM [Suspect]
     Indication: DYSLIPIDAEMIA
     Dosage: 80 MG, DAILY
     Dates: start: 201208, end: 201212
  2. SYNTHROID [Concomitant]
     Indication: HYPOTHYROIDISM
     Dosage: 137 UG, DAILY

REACTIONS (1)
  - Rash [Not Recovered/Not Resolved]
